FAERS Safety Report 8793551 (Version 1)
Quarter: 2012Q4

REPORT INFORMATION
  Report Type: 
  Country: DE (occurrence: DE)
  Receive Date: 20120917
  Receipt Date: 20120917
  Transmission Date: 20130627
  Serious: Yes (Other)
  Sender: FDA-Public Use
  Company Number: DE-ASTRAZENECA-2012SE71121

PATIENT
  Sex: Female

DRUGS (2)
  1. MERONEM [Suspect]
     Indication: LUNG DISORDER
     Dosage: four times in 2012, each time for ten days, daily dose 1g three times a day
     Route: 042
     Dates: start: 2012, end: 2012
  2. MERONEM [Suspect]
     Indication: EMPHYSEMA
     Dosage: four times in 2012, each time for ten days, daily dose 1g three times a day
     Route: 042
     Dates: start: 2012, end: 2012

REACTIONS (3)
  - Pharyngeal oedema [Unknown]
  - Pharyngeal oedema [Unknown]
  - Swelling face [Unknown]
